FAERS Safety Report 4824555-8 (Version None)
Quarter: 2005Q4

REPORT INFORMATION
  Report Type: 
  Country: None (occurrence: None)
  Receive Date: 20051108
  Receipt Date: 20051026
  Transmission Date: 20060501
  Serious: Yes (Other)
  Sender: FDA-Public Use
  Company Number: GBS051018930

PATIENT
  Sex: Female

DRUGS (1)
  1. XIGRIS [Suspect]
     Dosage: 24 MG/KG/HR
     Dates: start: 20051024, end: 20051026

REACTIONS (2)
  - INTERNATIONAL NORMALISED RATIO INCREASED [None]
  - THROMBOCYTOPENIA [None]
